FAERS Safety Report 9163705 (Version 1)
Quarter: 2013Q1

REPORT INFORMATION
  Report Type: Spontaneous
  Country: TR (occurrence: TR)
  Receive Date: 20130314
  Receipt Date: 20130314
  Transmission Date: 20140127
  Serious: Yes (Hospitalization)
  Sender: FDA-Public Use
  Company Number: TR-ALLERGAN-1303594US

PATIENT
  Age: 14 Year
  Sex: Female

DRUGS (1)
  1. BOTOX [Suspect]
     Indication: PRODUCT USED FOR UNKNOWN INDICATION
     Dosage: 150 UNITS, SINGLE
     Route: 030
     Dates: start: 20130208, end: 20130208

REACTIONS (3)
  - Sensory disturbance [Recovered/Resolved]
  - Disturbance in attention [Recovered/Resolved]
  - Dysphagia [Recovered/Resolved]
